FAERS Safety Report 20232323 (Version 2)
Quarter: 2022Q1

REPORT INFORMATION
  Report Type: Spontaneous
  Country: MY (occurrence: MY)
  Receive Date: 20211227
  Receipt Date: 20220106
  Transmission Date: 20220423
  Serious: Yes (Death, Hospitalization)
  Sender: FDA-Public Use
  Company Number: MY-002147023-NVSC2021MY295696

PATIENT

DRUGS (1)
  1. RUXOLITINIB [Suspect]
     Active Substance: RUXOLITINIB
     Indication: Myelofibrosis
     Dosage: 20 MG, BID
     Route: 048
     Dates: start: 201507

REACTIONS (3)
  - Transformation to acute myeloid leukaemia [Fatal]
  - Pneumonia [Unknown]
  - Salmonellosis [Unknown]

NARRATIVE: CASE EVENT DATE: 20160401
